FAERS Safety Report 5402231-0 (Version None)
Quarter: 2007Q3

REPORT INFORMATION
  Report Type: 
  Country: None (occurrence: None)
  Receive Date: 20070727
  Receipt Date: 20060502
  Transmission Date: 20080115
  Serious: Yes (Hospitalization)
  Sender: FDA-Public Use
  Company Number: THYM-10943

PATIENT
  Age: 55 Year
  Sex: Male
  Weight: 76.5672 kg

DRUGS (9)
  1. THYMOGLOBULIN [Suspect]
     Indication: LIVER TRANSPLANT
     Dosage: 1.5 MG/KW; IV
     Route: 042
     Dates: start: 20060405, end: 20060409
  2. CELLCEPT [Concomitant]
  3. PROGRAF [Concomitant]
  4. BACTRIM [Concomitant]
  5. VALCYTE [Concomitant]
  6. NYSTATIN SOLUTION [Concomitant]
  7. ASPIRIN [Concomitant]
  8. ZANTAC 150 [Concomitant]
  9. LASIX [Concomitant]

REACTIONS (3)
  - ARTHRALGIA [None]
  - HAEMATOCRIT DECREASED [None]
  - MYALGIA [None]
